FAERS Safety Report 9547754 (Version 2)
Quarter: 2013Q3

REPORT INFORMATION
  Report Type: Report from Study
  Country: FR (occurrence: FR)
  Receive Date: 20130924
  Receipt Date: 20130924
  Transmission Date: 20140515
  Serious: Yes (Death, Other)
  Sender: FDA-Public Use
  Company Number: FR-ASTELLAS-2013EU005156

PATIENT
  Age: 74 Year
  Sex: Male
  Weight: 78 kg

DRUGS (5)
  1. ENZALUTAMIDE [Suspect]
     Indication: PROSTATE CANCER
     Dosage: 160 MG, UID/QD
     Route: 048
     Dates: start: 20130502, end: 201306
  2. LAROXYL [Concomitant]
     Indication: DEPRESSION
     Dosage: 5 DROPS, UNKNOWN/D
     Route: 048
     Dates: start: 2009, end: 201306
  3. LYRICA [Concomitant]
     Indication: PAIN
     Dosage: 100 MG, QOD
     Route: 048
     Dates: start: 2009, end: 201306
  4. LOVENOX [Concomitant]
     Indication: PROPHYLAXIS
     Dosage: 0.4 ML, OTHER
     Route: 058
     Dates: start: 20130502, end: 201306
  5. EPREX [Concomitant]
     Indication: ANAEMIA
     Dosage: 40000 IU, UNKNOWN/D
     Route: 058
     Dates: start: 20130503, end: 201306

REACTIONS (7)
  - Malignant neoplasm progression [Fatal]
  - General physical health deterioration [Unknown]
  - Depressed level of consciousness [Unknown]
  - Hepatic failure [Unknown]
  - Tremor [Unknown]
  - Oedema peripheral [Unknown]
  - Genital herpes [Recovered/Resolved]
